FAERS Safety Report 10344428 (Version 1)
Quarter: 2014Q3

REPORT INFORMATION
  Report Type: Spontaneous
  Country: US (occurrence: None)
  Receive Date: 20140725
  Receipt Date: 20140725
  Transmission Date: 20150326
  Serious: No
  Sender: FDA-Public Use
  Company Number: None

PATIENT
  Sex: Female

DRUGS (1)
  1. ZANTAC [Suspect]
     Active Substance: RANITIDINE HYDROCHLORIDE

REACTIONS (5)
  - Incorrect dose administered [None]
  - Vomiting [None]
  - Diet refusal [None]
  - Lethargy [None]
  - Drug dispensing error [None]

NARRATIVE: CASE EVENT DATE: 2014
